FAERS Safety Report 18837610 (Version 1)
Quarter: 2021Q1

REPORT INFORMATION
  Report Type: Spontaneous
  Country: US (occurrence: US)
  Receive Date: 20210203
  Receipt Date: 20210203
  Transmission Date: 20210419
  Serious: No
  Sender: FDA-Public Use
  Company Number: US-ALLERGAN-2026799US

PATIENT
  Age: 55 Year
  Sex: Female

DRUGS (1)
  1. BOTOX [Suspect]
     Active Substance: ONABOTULINUMTOXINA
     Indication: ANAL FISSURE
     Dosage: UNK, SINGLE
     Dates: start: 20200710, end: 20200710

REACTIONS (4)
  - Burning sensation [Recovered/Resolved]
  - Gastrointestinal pain [Recovered/Resolved]
  - Proctalgia [Recovered/Resolved]
  - Off label use [Unknown]

NARRATIVE: CASE EVENT DATE: 20200710
